FAERS Safety Report 9217027 (Version 1)
Quarter: 2013Q2

REPORT INFORMATION
  Report Type: Spontaneous
  Country: AR (occurrence: AR)
  Receive Date: 20130408
  Receipt Date: 20130408
  Transmission Date: 20140414
  Serious: Yes (Death)
  Sender: FDA-Public Use
  Company Number: AR-BAYER-2013-038934

PATIENT
  Sex: Male

DRUGS (1)
  1. QLAIRA [Suspect]
     Dosage: UNK
     Route: 064
     Dates: start: 201204, end: 201207

REACTIONS (1)
  - Foetal distress syndrome [Fatal]
